FAERS Safety Report 10182771 (Version 1)
Quarter: 2014Q2

REPORT INFORMATION
  Report Type: Spontaneous
  Country: RS (occurrence: RS)
  Receive Date: 20140520
  Receipt Date: 20140520
  Transmission Date: 20141212
  Serious: Yes (Hospitalization)
  Sender: FDA-Public Use
  Company Number: RS-ACTAVIS-2014-10042

PATIENT
  Age: 76 Year
  Sex: Male
  Weight: 82 kg

DRUGS (7)
  1. ENALAPRIL [Suspect]
     Indication: ESSENTIAL HYPERTENSION
     Dosage: 30 MG (1/2 IN THE MORNING AND ONE TABLET AT NIGHT)
     Route: 048
     Dates: start: 20140323
  2. ALLOPURINOL [Concomitant]
     Indication: PURINE METABOLISM DISORDER
     Dosage: 100 MG, DAILY
     Route: 048
  3. GLUFORMIN [Concomitant]
     Indication: TYPE 1 DIABETES MELLITUS
     Dosage: 500 MG, BID
     Route: 048
  4. MIXTARD                            /00806401/ [Concomitant]
     Indication: TYPE 1 DIABETES MELLITUS
     Dosage: 3 UNK, DAILY
     Route: 058
  5. TAMSOL [Concomitant]
     Indication: PROSTATIC DISORDER
     Dosage: 1 UNK, DAILY
     Route: 048
  6. FENOLIP                            /00082102/ [Concomitant]
     Indication: HYPERTRIGLYCERIDAEMIA
     Dosage: 1 UNK, DAILY
     Route: 048
  7. VAZOTAL [Concomitant]
     Indication: ESSENTIAL HYPERTENSION
     Dosage: 5 MG, DAILY
     Route: 048

REACTIONS (1)
  - Hypersensitivity [Recovered/Resolved]
